FAERS Safety Report 8596604-5 (Version None)
Quarter: 2012Q3

REPORT INFORMATION
  Report Type: 
  Country: None (occurrence: None)
  Receive Date: 20120815
  Receipt Date: 20120803
  Transmission Date: 20120928
  Serious: Yes (Other)
  Sender: FDA-Public Use
  Company Number: US-BRISTOL-MYERS SQUIBB COMPANY-16681207

PATIENT
  Age: 45 Year
  Sex: Male

DRUGS (1)
  1. ORENCIA [Suspect]
     Indication: RHEUMATOID ARTHRITIS
     Dosage: LAST DATE OF INFUSION:04NOV2011 ,24JUL2012. STOPPED ON DEC2011 AND RESTARTED ON MAY2012.
     Route: 042

REACTIONS (3)
  - CARDIAC FAILURE CONGESTIVE [None]
  - HERPES ZOSTER [None]
  - OSTEOMYELITIS [None]
